FAERS Safety Report 18777418 (Version 1)
Quarter: 2021Q1

REPORT INFORMATION
  Report Type: Spontaneous
  Country: US (occurrence: US)
  Receive Date: 20210122
  Receipt Date: 20210122
  Transmission Date: 20210419
  Serious: Yes (Hospitalization)
  Sender: FDA-Public Use
  Company Number: US-TEVA-2021-US-1869817

PATIENT
  Age: 43 Year
  Sex: Male

DRUGS (2)
  1. PACLITAXEL. [Concomitant]
     Active Substance: PACLITAXEL
     Indication: PANCREATIC CARCINOMA
     Route: 065
  2. GEMCITABINE. [Suspect]
     Active Substance: GEMCITABINE
     Indication: PANCREATIC CARCINOMA
     Route: 065

REACTIONS (6)
  - Red blood cell schistocytes present [Unknown]
  - Acute kidney injury [Not Recovered/Not Resolved]
  - Haemolytic anaemia [Unknown]
  - Leukopenia [Unknown]
  - Thrombotic microangiopathy [Not Recovered/Not Resolved]
  - Thrombocytopenia [Unknown]
